FAERS Safety Report 9433502 (Version 1)
Quarter: 2013Q3

REPORT INFORMATION
  Report Type: Spontaneous
  Country: US (occurrence: US)
  Receive Date: 20130731
  Receipt Date: 20130731
  Transmission Date: 20140515
  Serious: No
  Sender: FDA-Public Use
  Company Number: US-PFIZER INC-2013222430

PATIENT
  Sex: Female

DRUGS (2)
  1. ACETYLSALICYLIC ACID [Suspect]
     Indication: HEADACHE
     Dosage: UNK
  2. ADVIL PM [Suspect]
     Dosage: 1 DF, 1X/DAY
     Dates: start: 2013, end: 2013

REACTIONS (2)
  - Epistaxis [Unknown]
  - Insomnia [Unknown]
